FAERS Safety Report 6466213-2 (Version None)
Quarter: 2009Q4

REPORT INFORMATION
  Report Type: 
  Country: None (occurrence: None)
  Receive Date: 20091202
  Receipt Date: 20091121
  Transmission Date: 20100525
  Serious: Yes (Life-Threatening, Other)
  Sender: FDA-Public Use
  Company Number: CA-ROCHE-670678

PATIENT
  Age: 35 Year
  Sex: Male
  Weight: 116.8 kg

DRUGS (15)
  1. TAMIFLU [Suspect]
     Indication: H1N1 INFLUENZA
     Route: 048
     Dates: start: 20091104, end: 20091115
  2. TAMIFLU [Suspect]
     Route: 048
  3. CEFAZOLIN [Concomitant]
     Route: 042
     Dates: start: 20091101
  4. FLUCONAZOLE [Concomitant]
     Route: 042
     Dates: start: 20091101
  5. FAMOTIDINE [Concomitant]
     Indication: PROPHYLAXIS AGAINST GASTROINTESTINAL ULCER
     Route: 042
     Dates: start: 20091101
  6. METOCLOPRAMIDE [Concomitant]
     Route: 042
     Dates: start: 20091101
  7. ALBUTEROL [Concomitant]
     Route: 055
     Dates: start: 20091101
  8. EPINEPHRINE [Concomitant]
     Route: 041
  9. MIDAZOLAM HCL [Concomitant]
  10. ACETYLCYSTEINE [Concomitant]
  11. NOREPINEPHRINE BITARTRATE [Concomitant]
  12. PANCURONIUM BROMIDE [Concomitant]
  13. ROCURONIUM BROMIDE [Concomitant]
  14. VASOPRESSIN [Concomitant]
  15. MILRINONE [Concomitant]

REACTIONS (6)
  - CONDITION AGGRAVATED [None]
  - DEEP VEIN THROMBOSIS [None]
  - DIALYSIS [None]
  - RENAL IMPAIRMENT [None]
  - RESPIRATORY FAILURE [None]
  - WHEEZING [None]
